FAERS Safety Report 6972588-8 (Version None)
Quarter: 2010Q3

REPORT INFORMATION
  Report Type: 
  Country: None (occurrence: None)
  Receive Date: 20100909
  Receipt Date: 20100831
  Transmission Date: 20110219
  Serious: Yes (Other)
  Sender: FDA-Public Use
  Company Number: JP-SANOFI-AVENTIS-F01200900847

PATIENT
  Age: 77 Year
  Sex: Male
  Weight: 57.7 kg

DRUGS (15)
  1. CLOPIDOGREL BISULFATE [Suspect]
     Indication: ACUTE CORONARY SYNDROME
     Dosage: DOSE TEXT: STARTING DOSE
     Route: 048
     Dates: start: 20080618, end: 20080618
  2. CLOPIDOGREL BISULFATE [Suspect]
     Dosage: DOSE TEXT: MAINTENANCE DOSE
     Route: 048
     Dates: start: 20080619, end: 20090605
  3. ASPIRIN [Concomitant]
     Indication: ANGINA UNSTABLE
     Route: 048
  4. HEPARIN [Concomitant]
     Indication: ANGINA UNSTABLE
     Route: 042
     Dates: start: 20081203, end: 20081203
  5. NORVASC [Concomitant]
     Indication: ANGINA UNSTABLE
     Route: 048
  6. LIPITOR [Concomitant]
     Route: 048
  7. TAKEPRON [Concomitant]
     Indication: GASTRITIS PROPHYLAXIS
     Route: 048
  8. SIGMART [Concomitant]
     Indication: ANGINA UNSTABLE
     Route: 048
  9. HYPEN [Concomitant]
     Route: 048
     Dates: end: 20090103
  10. GASMOTIN [Concomitant]
     Route: 048
  11. PANCREAZE [Concomitant]
     Route: 048
     Dates: end: 20081220
  12. OPALMON [Concomitant]
     Route: 048
     Dates: end: 20081122
  13. SOLANAX [Concomitant]
     Route: 048
  14. PLETAL [Concomitant]
     Indication: ANGINA UNSTABLE
     Route: 048
  15. VOLTAREN [Concomitant]
     Route: 048
     Dates: start: 20090116

REACTIONS (2)
  - ANGINA PECTORIS [None]
  - IN-STENT CORONARY ARTERY RESTENOSIS [None]
